FAERS Safety Report 18547015 (Version 2)
Quarter: 2021Q1

REPORT INFORMATION
  Report Type: Spontaneous
  Country: US (occurrence: US)
  Receive Date: 20201125
  Receipt Date: 20210121
  Transmission Date: 20210419
  Serious: Yes (Other)
  Sender: FDA-Public Use
  Company Number: US-PFIZER INC-2020461077

PATIENT
  Age: 45 Year
  Sex: Female

DRUGS (1)
  1. XELJANZ [Suspect]
     Active Substance: TOFACITINIB CITRATE
     Indication: COLITIS ULCERATIVE
     Dosage: 10 MG, 2X/DAY (TWICE DAILY)
     Route: 048
     Dates: start: 20201009

REACTIONS (6)
  - Haematochezia [Unknown]
  - Haemorrhoids [Unknown]
  - Depressed mood [Unknown]
  - Sleep disorder [Unknown]
  - Discouragement [Unknown]
  - Constipation [Unknown]
